FAERS Safety Report 5016511-4 (Version None)
Quarter: 2006Q2

REPORT INFORMATION
  Report Type: 
  Country: None (occurrence: None)
  Receive Date: 20060602
  Receipt Date: 20060503
  Transmission Date: 20061013
  Serious: Yes (Hospitalization, Other)
  Sender: FDA-Public Use
  Company Number: 2006UW08610

PATIENT
  Age: 61 Year
  Sex: Female
  Weight: 67.1 kg

DRUGS (9)
  1. SEROQUEL [Suspect]
     Indication: ANXIETY
     Route: 048
     Dates: start: 20050808
  2. SEROQUEL [Suspect]
     Indication: DEPRESSION
     Route: 048
     Dates: start: 20050808
  3. SEROQUEL [Suspect]
     Indication: POST-TRAUMATIC STRESS DISORDER
     Route: 048
     Dates: start: 20050808
  4. SEROQUEL [Suspect]
     Route: 048
     Dates: end: 20051105
  5. SEROQUEL [Suspect]
     Route: 048
     Dates: end: 20051105
  6. SEROQUEL [Suspect]
     Route: 048
     Dates: end: 20051105
  7. TOPROL-XL [Concomitant]
  8. CARDIZEM [Concomitant]
  9. COUMADIN [Concomitant]

REACTIONS (6)
  - ASTHENIA [None]
  - CARDIAC DISORDER [None]
  - CARDIOVERSION [None]
  - HEART RATE INCREASED [None]
  - HEART RATE IRREGULAR [None]
  - OEDEMA PERIPHERAL [None]
